FAERS Safety Report 9036144 (Version 1)
Quarter: 2013Q1

REPORT INFORMATION
  Report Type: Spontaneous
  Country: BE (occurrence: None)
  Receive Date: 20130116
  Receipt Date: 20130116
  Transmission Date: 20140127
  Serious: Yes (Hospitalization)
  Sender: FDA-Public Use
  Company Number: 2009EU002880

PATIENT
  Age: 76 Year
  Sex: Male

DRUGS (12)
  1. TACROLIMUS [Suspect]
     Route: 048
     Dates: start: 20040627, end: 20041004
  2. TACROLIMUS [Suspect]
     Route: 048
     Dates: start: 20050330
  3. DACLIZUMAB [Suspect]
     Dosage: 60 MG, OTHER, IV NOS
     Route: 042
     Dates: start: 20040712
  4. MYCOPHENOLATE MOFETIL (MYCOPHENOLATE MOFETIL) [Suspect]
     Route: 048
     Dates: start: 20040627, end: 20040627
  5. MEDROL [Suspect]
     Dosage: 32 MG, UID/QD, ORAL
     Route: 048
     Dates: start: 20040630
  6. SOLU-MEDROL [Suspect]
     Dosage: 80 MG, QID/QD, IV NOS
     Route: 042
     Dates: start: 20040627, end: 20040630
  7. OMEPRAZOLE (OMERPAZOLE) [Concomitant]
  8. AREDIA (PAMIDRONATE DISODIUM) [Concomitant]
  9. DIOVAN (VALSARTAN) [Concomitant]
  10. FLUDEX (INDAPAMIDE) [Concomitant]
  11. HYDERGINE (DIHYDROERGOTOXINE MESILATE) [Concomitant]
  12. SELOZOK (METOPROLOL SUCCINATE) [Concomitant]

REACTIONS (2)
  - Lung infection [None]
  - Parkinson^s disease [None]
